FAERS Safety Report 6539102-2 (Version None)
Quarter: 2010Q1

REPORT INFORMATION
  Report Type: 
  Country: None (occurrence: None)
  Receive Date: 20100115
  Receipt Date: 20100111
  Transmission Date: 20100710
  Serious: Yes (Other)
  Sender: FDA-Public Use
  Company Number: PHHY2009DE33483

PATIENT
  Sex: Female
  Weight: 62 kg

DRUGS (6)
  1. CGS 20267 T30748+ [Suspect]
     Indication: BREAST CANCER
     Dosage: 2.5 MG DAILY
     Route: 048
     Dates: start: 20081209, end: 20090718
  2. ATENOLOL [Concomitant]
     Indication: HYPERTENSION
     Dosage: 1-0-0
     Route: 048
     Dates: start: 19880101
  3. HYDROCHLOROTHIAZIDE W/RAMIPRIL [Concomitant]
     Indication: HYPERTENSION
     Dosage: 1-0-0
     Route: 048
     Dates: start: 19880101
  4. ISOSORBIDE [Concomitant]
     Indication: CORONARY ARTERY DISEASE
     Dosage: 0-1-0
     Route: 048
     Dates: start: 19950101
  5. LAXANTE [Concomitant]
     Indication: CATARACT
     Dosage: UNK
     Route: 048
     Dates: start: 20060101
  6. ASPIRIN [Concomitant]
     Indication: CORONARY ARTERY DISEASE
     Dosage: UNK
     Route: 048
     Dates: start: 19950101

REACTIONS (3)
  - VENOUS INSUFFICIENCY [None]
  - VISION BLURRED [None]
  - VISUAL IMPAIRMENT [None]
